FAERS Safety Report 8896031 (Version 1)
Quarter: 2012Q4

REPORT INFORMATION
  Report Type: 
  Country: US (occurrence: US)
  Receive Date: 20121108
  Receipt Date: 20121108
  Transmission Date: 20130627
  Serious: No
  Sender: FDA-Public Use
  Company Number: US-BAYER-2012-102820

PATIENT

DRUGS (1)
  1. CIPRO [Suspect]
     Dosage: 1000 mg, UNK

REACTIONS (1)
  - Medication error [None]
